FAERS Safety Report 22526019 (Version 2)
Quarter: 2023Q2

REPORT INFORMATION
  Report Type: Spontaneous
  Country: BA (occurrence: BA)
  Receive Date: 20230606
  Receipt Date: 20230612
  Transmission Date: 20230722
  Serious: Yes (Hospitalization)
  Sender: FDA-Public Use
  Company Number: BA-MYLANLABS-2023M1057165

PATIENT
  Age: 26 Year
  Sex: Female

DRUGS (1)
  1. ARIXTRA [Suspect]
     Active Substance: FONDAPARINUX SODIUM
     Indication: Prophylaxis
     Dosage: 2.5 MILLIGRAM (2.5MG X 1 S.C)
     Route: 058
     Dates: start: 20230223, end: 20230508

REACTIONS (2)
  - Fibrin D dimer increased [Not Recovered/Not Resolved]
  - Product use issue [Unknown]
